FAERS Safety Report 8270396-1 (Version None)
Quarter: 2012Q2

REPORT INFORMATION
  Report Type: 
  Country: None (occurrence: None)
  Receive Date: 20120410
  Receipt Date: 20120404
  Transmission Date: 20120825
  Serious: No
  Sender: FDA-Public Use
  Company Number: US-BAYER-2012-034120

PATIENT
  Sex: Female

DRUGS (2)
  1. ALEVE (CAPLET) [Suspect]
     Indication: PAIN
     Dosage: 2 DF, Q12H
     Route: 048
     Dates: start: 20120403, end: 20120404
  2. LIQUID PAIN RELIEVER / FEVER REDUCER [Concomitant]
     Dosage: UNK

REACTIONS (1)
  - NO ADVERSE EVENT [None]
